FAERS Safety Report 7653028-2 (Version None)
Quarter: 2011Q3

REPORT INFORMATION
  Report Type: 
  Country: None (occurrence: None)
  Receive Date: 20110803
  Receipt Date: 20110801
  Transmission Date: 20111222
  Serious: Yes (Hospitalization)
  Sender: FDA-Public Use
  Company Number: US-ROXANE LABORATORIES, INC.-2011-RO-01089RO

PATIENT
  Age: 61 Year
  Sex: Female

DRUGS (3)
  1. METHADONE HYDROCHLORIDE [Suspect]
  2. DILAUDID [Suspect]
  3. IPILIMUMAB [Suspect]
     Indication: MALIGNANT MELANOMA
     Route: 042
     Dates: start: 20110531, end: 20110714

REACTIONS (3)
  - HALLUCINATION [None]
  - NEOPLASM MALIGNANT [None]
  - HYPERCALCAEMIA [None]
